FAERS Safety Report 19363807 (Version 1)
Quarter: 2021Q2

REPORT INFORMATION
  Report Type: Spontaneous
  Country: US (occurrence: US)
  Receive Date: 20210602
  Receipt Date: 20210602
  Transmission Date: 20210717
  Serious: No
  Sender: FDA-Public Use
  Company Number: US-BRECKENRIDGE PHARMACEUTICAL, INC.-2112245

PATIENT
  Age: 48 Year
  Sex: Female
  Weight: 65.91 kg

DRUGS (1)
  1. OXCARBAZEPINE TABLET, FILM COATED [Suspect]
     Active Substance: OXCARBAZEPINE
     Indication: BIPOLAR DISORDER
     Route: 048

REACTIONS (4)
  - Neck pain [None]
  - Pain [None]
  - Myalgia [None]
  - Back pain [None]
